FAERS Safety Report 5541729-1 (Version None)
Quarter: 2007Q4

REPORT INFORMATION
  Report Type: 
  Country: None (occurrence: None)
  Receive Date: 20071205
  Receipt Date: 20071127
  Transmission Date: 20080405
  Serious: Yes (Death)
  Sender: FDA-Public Use
  Company Number: DSU-2007-00937

PATIENT
  Sex: Female

DRUGS (5)
  1. OLMESARTAN MEDOXOMIL-HYDROCHLOROTHIAZIDE (HYDROCHLOROTHIAZIDE, OLMESAR [Suspect]
     Indication: HYPERTENSION
     Dosage: 10 MG (QD), PER ORAL, 20/12.5 MG (QD), PER ORAL
     Route: 048
     Dates: start: 20070821, end: 20070828
  2. OLMESARTAN MEDOXOMIL-HYDROCHLOROTHIAZIDE (HYDROCHLOROTHIAZIDE, OLMESAR [Suspect]
     Indication: HYPERTENSION
     Dosage: 10 MG (QD), PER ORAL, 20/12.5 MG (QD), PER ORAL
     Route: 048
     Dates: start: 20070828
  3. FLUIMICIL (ACETYLCYSTEINE) [Concomitant]
  4. KLARICID (CLARITHROMYCIN) (CLARITHROMYCIN) [Concomitant]
  5. TEBOKAN (GINKGO BILOBA EXTRACT) (GINKGO BILOBA EXTRACT) [Concomitant]

REACTIONS (1)
  - DEATH [None]
